FAERS Safety Report 14930224 (Version 1)
Quarter: 2018Q2

REPORT INFORMATION
  Report Type: Spontaneous
  Country: BG (occurrence: BG)
  Receive Date: 20180523
  Receipt Date: 20180523
  Transmission Date: 20180711
  Serious: Yes (Other)
  Sender: FDA-Public Use
  Company Number: BG-TERSERA THERAPEUTICS, LLC-2048334

PATIENT
  Age: 40 Year
  Sex: Female

DRUGS (1)
  1. ZOLADEX [Suspect]
     Active Substance: GOSERELIN ACETATE
     Indication: BREAST CANCER FEMALE
     Route: 058

REACTIONS (10)
  - Hyperhidrosis [Unknown]
  - Alopecia [Not Recovered/Not Resolved]
  - Leukopenia [Unknown]
  - Finger deformity [Unknown]
  - Onychoclasis [Unknown]
  - Weight increased [Unknown]
  - Vaginal discharge [Unknown]
  - Neutropenia [Unknown]
  - Joint stiffness [Unknown]
  - Tremor [Unknown]

NARRATIVE: CASE EVENT DATE: 201801
